FAERS Safety Report 15864595 (Version 8)
Quarter: 2019Q2

REPORT INFORMATION
  Report Type: Report from Study
  Country: US (occurrence: US)
  Receive Date: 20190124
  Receipt Date: 20190606
  Transmission Date: 20190711
  Serious: Yes (Life-Threatening, Hospitalization)
  Sender: FDA-Public Use
  Company Number: US-PFIZER INC-2018499418

PATIENT
  Age: 70 Year
  Sex: Male
  Weight: 85.73 kg

DRUGS (22)
  1. AXITINIB [Suspect]
     Active Substance: AXITINIB
     Indication: RENAL CELL CARCINOMA
     Dosage: 5 MG, 2X/DAY (STARTING DOSE AT 5 MG BID, FLUCTUATED DOSES)
     Route: 048
     Dates: start: 20170920, end: 20181108
  2. POTASSIUM CHLORIDE. [Concomitant]
     Active Substance: POTASSIUM CHLORIDE
     Indication: HYPOKALAEMIA
     Dosage: 20 MEQ, UNK
     Dates: start: 20181108, end: 20181125
  3. BISMUTH SUBSALICYLATE. [Concomitant]
     Active Substance: BISMUTH SUBSALICYLATE
     Dosage: 525 MG, UNK
     Route: 048
     Dates: start: 20180115, end: 20181128
  4. LOPERAMIDE [Concomitant]
     Active Substance: LOPERAMIDE
     Dosage: 2 MG, UNK
     Dates: start: 20180922, end: 20181128
  5. AXITINIB [Suspect]
     Active Substance: AXITINIB
     Dosage: 4 MG, 1X/DAY (STARTING DOSE AT 4 MG, QD, FLUCTUATED DOSES)
     Route: 048
     Dates: start: 20190104
  6. ZOLEDRONIC ACID [Concomitant]
     Active Substance: ZOLEDRONIC ACID
     Dosage: 4 MG, UNK
     Dates: start: 20170906
  7. AMLODIPINE [Concomitant]
     Active Substance: AMLODIPINE BESYLATE
     Dosage: 10 MG, UNK
     Dates: start: 20180323
  8. IRBESARTAN. [Concomitant]
     Active Substance: IRBESARTAN
     Dosage: 300 MG, UNK
     Dates: start: 20180727
  9. A-HYDROCORT [Concomitant]
     Active Substance: HYDROCORTISONE SODIUM SUCCINATE
     Dosage: 5 MG, UNK
     Dates: start: 201511
  10. CHLORTHALIDONE. [Concomitant]
     Active Substance: CHLORTHALIDONE
     Indication: OEDEMA PERIPHERAL
     Dosage: 25 MG, UNK
     Dates: start: 201111, end: 20181213
  11. AVASTIN [Concomitant]
     Active Substance: BEVACIZUMAB
     Dosage: 1.25 MG, UNK
     Dates: start: 20160809
  12. ATORVASTATIN CALCIUM. [Concomitant]
     Active Substance: ATORVASTATIN CALCIUM
     Dosage: 40 MG, UNK
     Dates: start: 20180905
  13. AXITINIB [Suspect]
     Active Substance: AXITINIB
     Dosage: 3 MG, 2X/DAY
     Route: 048
     Dates: start: 20181108, end: 20181123
  14. AXITINIB [Suspect]
     Active Substance: AXITINIB
     Dosage: 3 MG, 1X/DAY
     Route: 048
     Dates: start: 20181124, end: 20181124
  15. PEMBROLIZUMAB. [Suspect]
     Active Substance: PEMBROLIZUMAB
     Dosage: 200 MG, EVERY 3 WEEKS
     Route: 042
     Dates: start: 20181108, end: 20181108
  16. CARVEDILOL. [Concomitant]
     Active Substance: CARVEDILOL
     Dosage: 25 MG, UNK
     Dates: start: 20180216
  17. PEMBROLIZUMAB. [Suspect]
     Active Substance: PEMBROLIZUMAB
     Dosage: 200 MG, EVERY 3 WEEKS
     Route: 042
     Dates: start: 20181206
  18. NOVOLOG [Concomitant]
     Active Substance: INSULIN ASPART
     Dosage: 25 DF, UNK
     Dates: start: 201211
  19. FLUDROCORTISON [Concomitant]
     Active Substance: FLUDROCORTISONE
     Dosage: 0.5 MEQ, UNK
     Dates: start: 201511
  20. PEMBROLIZUMAB. [Suspect]
     Active Substance: PEMBROLIZUMAB
     Indication: RENAL CELL CARCINOMA
     Dosage: 200 MG, Q3W (VOLUME OF INFUSION: 200 ML)
     Route: 042
     Dates: start: 20170920, end: 20181018
  21. LEVEMIR [Concomitant]
     Active Substance: INSULIN DETEMIR
     Dosage: 120 DF, UNK
     Dates: start: 201411, end: 20190211
  22. LEVOTHYROXINE SODIUM. [Concomitant]
     Active Substance: LEVOTHYROXINE SODIUM
     Indication: HYPOTHYROIDISM
     Dosage: 125 MEQ, UNK
     Dates: start: 20180615, end: 20190114

REACTIONS (1)
  - Diarrhoea [Recovered/Resolved]

NARRATIVE: CASE EVENT DATE: 20181123
